FAERS Safety Report 11073742 (Version 1)
Quarter: 2015Q2

REPORT INFORMATION
  Report Type: Spontaneous
  Country: SE (occurrence: SE)
  Receive Date: 20150428
  Receipt Date: 20150428
  Transmission Date: 20150821
  Serious: Yes (Other)
  Sender: FDA-Public Use
  Company Number: PHHY2015SE047944

PATIENT
  Age: 19 Year
  Sex: Female

DRUGS (1)
  1. TRILEPTAL [Suspect]
     Active Substance: OXCARBAZEPINE
     Indication: EPILEPSY
     Dosage: 3 MG, BID
     Route: 065

REACTIONS (3)
  - Feeling jittery [Unknown]
  - Coordination abnormal [Unknown]
  - Diplopia [Unknown]

NARRATIVE: CASE EVENT DATE: 201503
